FAERS Safety Report 23435763 (Version 1)
Quarter: 2024Q1

REPORT INFORMATION
  Report Type: Spontaneous
  Country: US (occurrence: US)
  Receive Date: 20240124
  Receipt Date: 20240124
  Transmission Date: 20240410
  Serious: No
  Sender: FDA-Public Use
  Company Number: US-SUN PHARMACEUTICAL INDUSTRIES LTD-2023R1-397661

PATIENT
  Sex: Female

DRUGS (1)
  1. LEVULAN KERASTICK [Suspect]
     Active Substance: AMINOLEVULINIC ACID HYDROCHLORIDE
     Indication: Seborrhoeic dermatitis
     Dosage: UNK, APPLY 1.5 ML TOPICALLY ONCE FOR 1 DOSE. FOR USE WITH PDT
     Route: 061

REACTIONS (1)
  - Off label use [Not Recovered/Not Resolved]
